FAERS Safety Report 14078570 (Version 1)
Quarter: 2017Q4

REPORT INFORMATION
  Report Type: Spontaneous
  Country: US (occurrence: None)
  Receive Date: 20171012
  Receipt Date: 20171012
  Transmission Date: 20180321
  Serious: Yes (Hospitalization)
  Sender: FDA-Public Use
  Company Number: None

PATIENT
  Age: 82 Year
  Sex: Female

DRUGS (15)
  1. KEPPRA [Concomitant]
     Active Substance: LEVETIRACETAM
  2. PLAVIX [Concomitant]
     Active Substance: CLOPIDOGREL BISULFATE
  3. METOPROLOL TARTRATE. [Concomitant]
     Active Substance: METOPROLOL TARTRATE
  4. IBRANCE [Suspect]
     Active Substance: PALBOCICLIB
     Indication: BREAST CANCER FEMALE
     Route: 048
     Dates: start: 20170714
  5. VITAMIN D3 [Concomitant]
     Active Substance: CHOLECALCIFEROL
  6. MIRTAZAPINE. [Concomitant]
     Active Substance: MIRTAZAPINE
  7. LETROZOLE  2.5 MG [Suspect]
     Active Substance: LETROZOLE
     Indication: BREAST CANCER FEMALE
     Route: 048
     Dates: start: 20170715
  8. FOLIC ACID. [Concomitant]
     Active Substance: FOLIC ACID
  9. LISINOPRIL. [Concomitant]
     Active Substance: LISINOPRIL
  10. LEXAPRO [Concomitant]
     Active Substance: ESCITALOPRAM OXALATE
  11. METHIMAZOLE. [Concomitant]
     Active Substance: METHIMAZOLE
  12. VITAMIN D3 [Concomitant]
     Active Substance: CHOLECALCIFEROL
  13. LOVASTATIN. [Concomitant]
     Active Substance: LOVASTATIN
  14. ATORVASTATIN [Concomitant]
     Active Substance: ATORVASTATIN
  15. ASPIRIN. [Concomitant]
     Active Substance: ASPIRIN

REACTIONS (1)
  - Urinary tract infection [None]

NARRATIVE: CASE EVENT DATE: 201708
